FAERS Safety Report 5554264-1 (Version None)
Quarter: 2007Q4

REPORT INFORMATION
  Report Type: 
  Country: None (occurrence: None)
  Receive Date: 20071213
  Receipt Date: 20071211
  Transmission Date: 20080405
  Serious: Yes (Hospitalization)
  Sender: FDA-Public Use
  Company Number: A0698321A

PATIENT
  Age: 73 Year
  Sex: Male

DRUGS (14)
  1. ADVAIR DISKUS 100/50 [Suspect]
     Indication: CHRONIC OBSTRUCTIVE PULMONARY DISEASE
     Dosage: 1PUFF TWICE PER DAY
     Route: 055
     Dates: start: 20010101
  2. CARTIA XT [Concomitant]
  3. CARDURA [Concomitant]
  4. ECOTRIN [Concomitant]
  5. COMBIVENT [Concomitant]
  6. METFORMIN HCL [Concomitant]
  7. MEDROL [Concomitant]
  8. CENTRUM SILVER [Concomitant]
  9. SINEMET [Concomitant]
  10. FISH OIL [Concomitant]
  11. CLONAZEPAM [Concomitant]
  12. PAIN MEDICATION [Concomitant]
  13. NEBULIZER [Concomitant]
  14. OXYGEN [Concomitant]

REACTIONS (3)
  - APHASIA [None]
  - ILL-DEFINED DISORDER [None]
  - PNEUMONIA [None]
